FAERS Safety Report 10015064 (Version 2)
Quarter: 2014Q1

REPORT INFORMATION
  Report Type: Spontaneous
  Country: GB (occurrence: GB)
  Receive Date: 20140317
  Receipt Date: 20140317
  Transmission Date: 20141002
  Serious: Yes (Other)
  Sender: FDA-Public Use
  Company Number: PHFR2014GB001488

PATIENT
  Age: 62 Year
  Sex: Male

DRUGS (7)
  1. CLOZARIL [Suspect]
     Dosage: UNK
     Route: 048
     Dates: start: 20121128
  2. LAXIDO [Concomitant]
     Indication: CONSTIPATION
     Dosage: UNK UKN, UNK
     Route: 048
     Dates: start: 201211
  3. CO-BENELDOPA [Concomitant]
     Indication: PARKINSON^S DISEASE
     Dosage: 25/100 BID
     Route: 048
     Dates: start: 201211
  4. CO-BENELDOPA [Concomitant]
     Dosage: 25/100 MR NOCTE
     Route: 048
  5. CO-BENELDOPA [Concomitant]
     Dosage: 50/200 QD
     Route: 048
     Dates: start: 201211
  6. ENTACAPONE [Concomitant]
     Dosage: 200 MG, QD
     Route: 048
     Dates: start: 201211
  7. RIVASTIGMINE [Concomitant]
     Dosage: 9.5 MG, QD
     Route: 062
     Dates: start: 201211

REACTIONS (6)
  - Viral upper respiratory tract infection [Recovered/Resolved]
  - Nasopharyngitis [Unknown]
  - Decreased appetite [Unknown]
  - Malaise [Recovered/Resolved]
  - Pain [Recovered/Resolved]
  - Hypophagia [Recovered/Resolved]
